FAERS Safety Report 5724040-5 (Version None)
Quarter: 2008Q2

REPORT INFORMATION
  Report Type: 
  Country: None (occurrence: None)
  Receive Date: 20080430
  Receipt Date: 20080424
  Transmission Date: 20081010
  Serious: Yes (Life-Threatening, Hospitalization)
  Sender: FDA-Public Use
  Company Number: US-BOEHRINGER INGELHEIM GMBH, GERMANY-2008-BP-06510RO

PATIENT
  Age: 40 Year
  Sex: Female

DRUGS (6)
  1. METHADONE HCL [Suspect]
     Indication: DRUG DEPENDENCE
  2. METOPROLOL TARTRATE [Suspect]
     Indication: HYPERTENSION
  3. MAGNESIUM SULFATE [Concomitant]
     Indication: TORSADE DE POINTES
     Route: 042
  4. LIDOCAINE [Concomitant]
     Indication: TORSADE DE POINTES
     Route: 042
  5. LIDOCAINE [Concomitant]
     Route: 042
  6. POTASSIUM CHLORIDE [Concomitant]
     Indication: TORSADE DE POINTES

REACTIONS (8)
  - CONVULSION [None]
  - ELECTROCARDIOGRAM QT PROLONGED [None]
  - EXTRASYSTOLES [None]
  - LOSS OF CONSCIOUSNESS [None]
  - PULSE ABSENT [None]
  - TORSADE DE POINTES [None]
  - TREMOR [None]
  - VOMITING [None]
